FAERS Safety Report 24761836 (Version 2)
Quarter: 2025Q3

REPORT INFORMATION
  Report Type: Spontaneous
  Country: US (occurrence: US)
  Receive Date: 20241221
  Receipt Date: 20250809
  Transmission Date: 20251021
  Serious: Yes (Death, Hospitalization, Other)
  Sender: ALEXION PHARMACEUTICALS
  Company Number: US-ASTRAZENECA-202412USA016423US

PATIENT
  Age: 57 Year
  Sex: Male

DRUGS (16)
  1. OMEPRAZOLE [Suspect]
     Active Substance: OMEPRAZOLE
  2. METOPROLOL TARTRATE [Suspect]
     Active Substance: METOPROLOL TARTRATE
  3. AMITRIPTYLINE [Suspect]
     Active Substance: AMITRIPTYLINE
  4. AMLODIPINE [Suspect]
     Active Substance: AMLODIPINE BESYLATE
  5. ALCOHOL [Suspect]
     Active Substance: ALCOHOL
  6. VENLAFAXINE [Suspect]
     Active Substance: VENLAFAXINE HYDROCHLORIDE
  7. HYDROXYZINE [Suspect]
     Active Substance: HYDROXYZINE HYDROCHLORIDE
  8. DIAZEPAM [Suspect]
     Active Substance: DIAZEPAM
  9. ACETAMINOPHEN [Suspect]
     Active Substance: ACETAMINOPHEN
  10. RISPERIDONE [Suspect]
     Active Substance: RISPERIDONE
  11. TAMSULOSIN [Suspect]
     Active Substance: TAMSULOSIN
  12. ONDANSETRON [Suspect]
     Active Substance: ONDANSETRON
  13. OXCARBAZEPINE [Suspect]
     Active Substance: OXCARBAZEPINE
  14. ROSUVASTATIN [Suspect]
     Active Substance: ROSUVASTATIN
  15. VALSARTAN [Suspect]
     Active Substance: VALSARTAN
  16. IBUPROFEN [Suspect]
     Active Substance: IBUPROFEN

REACTIONS (2)
  - Toxicity to various agents [Fatal]
  - Completed suicide [Fatal]
